FAERS Safety Report 8349608-1 (Version None)
Quarter: 2012Q2

REPORT INFORMATION
  Report Type: 
  Country: None (occurrence: None)
  Receive Date: 20120510
  Receipt Date: 20120502
  Transmission Date: 20120825
  Serious: Yes (Other)
  Sender: FDA-Public Use
  Company Number: US-BAYER-2012-043634

PATIENT
  Age: 26 Year
  Sex: Female

DRUGS (4)
  1. BEYAZ [Suspect]
     Dosage: UNK
     Dates: start: 20080201, end: 20081001
  2. YAZ [Suspect]
     Dosage: UNK
     Dates: start: 20080201, end: 20081001
  3. DROSPIRENONE AND ETHINYL ESTRADIOL [Suspect]
     Dosage: UNK
     Dates: start: 20080201, end: 20081001
  4. YASMIN [Suspect]
     Dosage: UNK
     Dates: start: 20080201, end: 20081001

REACTIONS (7)
  - INJURY [None]
  - EMOTIONAL DISTRESS [None]
  - CHOLECYSTECTOMY [None]
  - PAIN [None]
  - PSYCHOLOGICAL TRAUMA [None]
  - ANHEDONIA [None]
  - ANXIETY [None]
